FAERS Safety Report 4559678-4 (Version None)
Quarter: 2005Q1

REPORT INFORMATION
  Report Type: 
  Country: None (occurrence: None)
  Receive Date: 20050114
  Receipt Date: 20031212
  Transmission Date: 20050727
  Serious: No
  Sender: FDA-Public Use
  Company Number: 20031103904

PATIENT
  Age: 32 Year
  Sex: Female
  Weight: 86.1834 kg

DRUGS (2)
  1. PARAGARD T380A (INTRAUTERINE CONTRACEPTIVES) (UTERINE) [Suspect]
     Indication: CONTRACEPTION
     Dosage: NA, NA, INTRA-UTERINE
     Route: 015
     Dates: start: 20000101, end: 20031118
  2. PARAGARD T380A (INTRAUTERINE CONTRACEPTIVES) (UTERINE) [Suspect]
     Indication: CONTRACEPTION
     Dosage: NA, NA, INTRA-UTERINE
     Route: 015
     Dates: start: 20031229

REACTIONS (3)
  - ABORTION SPONTANEOUS [None]
  - DRUG EXPOSURE DURING PREGNANCY [None]
  - PREGNANCY WITH CONTRACEPTIVE DEVICE [None]
